FAERS Safety Report 9103115 (Version 2)
Quarter: 2014Q1

REPORT INFORMATION
  Report Type: Report from Study
  Country: US (occurrence: US)
  Receive Date: 20130218
  Receipt Date: 20140304
  Transmission Date: 20141002
  Serious: Yes (Other)
  Sender: FDA-Public Use
  Company Number: US-BIOGENIDEC-2013BI012916

PATIENT
  Age: 51 Year
  Sex: Female

DRUGS (3)
  1. TYSABRI [Suspect]
     Indication: MULTIPLE SCLEROSIS
     Route: 042
     Dates: start: 20080728, end: 20090610
  2. GILENYA [Concomitant]
     Dates: start: 20110610, end: 201202
  3. GILENYA [Concomitant]
     Dates: start: 201202, end: 201203

REACTIONS (1)
  - Breast cancer [Recovered/Resolved with Sequelae]
